FAERS Safety Report 7574927-6 (Version None)
Quarter: 2011Q2

REPORT INFORMATION
  Report Type: 
  Country: None (occurrence: None)
  Receive Date: 20110627
  Receipt Date: 20110510
  Transmission Date: 20111010
  Serious: No
  Sender: FDA-Public Use
  Company Number: US-BAYER-2011-041628

PATIENT
  Age: 62 Year
  Sex: Male

DRUGS (5)
  1. RANITIDINE [Concomitant]
  2. ASPIRIN [Concomitant]
  3. LORAZEPAM [Concomitant]
  4. ALEVE (CAPLET) [Suspect]
     Indication: ARTHRITIS
     Dosage: ONE TO THREE CAPLET EVERY DAY
     Route: 048
     Dates: start: 20110201, end: 20110509
  5. LISINOPRIL AND HYDROCHLOROTHIAZIDE [Concomitant]

REACTIONS (1)
  - LIP BLISTER [None]
